FAERS Safety Report 9968039 (Version 1)
Quarter: 2014Q1

REPORT INFORMATION
  Report Type: Report from Study
  Country: US (occurrence: US)
  Receive Date: 20140306
  Receipt Date: 20140306
  Transmission Date: 20141002
  Serious: No
  Sender: FDA-Public Use
  Company Number: US-ABBVIE-13P-163-1145609-00

PATIENT
  Age: 44 Year
  Sex: Female
  Weight: 86.26 kg

DRUGS (9)
  1. HUMIRA [Suspect]
     Indication: PRODUCT USED FOR UNKNOWN INDICATION
     Route: 058
  2. AMLODIPINE [Concomitant]
     Indication: PRODUCT USED FOR UNKNOWN INDICATION
  3. FUROSEMIDE [Concomitant]
     Indication: PRODUCT USED FOR UNKNOWN INDICATION
  4. PREDNISONE [Concomitant]
     Indication: PRODUCT USED FOR UNKNOWN INDICATION
  5. EXCEDRIN MIGRAINE [Concomitant]
     Indication: PRODUCT USED FOR UNKNOWN INDICATION
  6. KLOR-CON [Concomitant]
     Indication: PRODUCT USED FOR UNKNOWN INDICATION
  7. OXYCODONE [Concomitant]
     Indication: PRODUCT USED FOR UNKNOWN INDICATION
  8. PERCOCET [Concomitant]
     Indication: PRODUCT USED FOR UNKNOWN INDICATION
     Dosage: 7.5-325
  9. TIZANIDINE [Concomitant]
     Indication: PRODUCT USED FOR UNKNOWN INDICATION

REACTIONS (2)
  - Headache [Unknown]
  - Local swelling [Unknown]
